FAERS Safety Report 7949493-3 (Version None)
Quarter: 2011Q4

REPORT INFORMATION
  Report Type: 
  Country: None (occurrence: None)
  Receive Date: 20111130
  Receipt Date: 20111116
  Transmission Date: 20120403
  Serious: Yes (Death)
  Sender: FDA-Public Use
  Company Number: JP-AMGEN-JPNCT2011040401

PATIENT
  Age: 76 Year
  Sex: Male
  Weight: 69 kg

DRUGS (26)
  1. PRIMPERAN TAB [Concomitant]
     Dosage: UNK
     Route: 048
  2. FLUOROURACIL [Concomitant]
     Indication: COLORECTAL CANCER
     Route: 040
     Dates: start: 20100803, end: 20100815
  3. BROTIZOLAM [Concomitant]
     Dosage: UNK
     Route: 048
  4. LEVOLEUCOVORIN CALCIUM [Concomitant]
     Indication: COLORECTAL CANCER
     Route: 041
     Dates: start: 20100803, end: 20100815
  5. LEVOFLOXACIN [Concomitant]
     Dosage: UNK
     Route: 048
  6. IRINOTECAN HCL [Suspect]
     Indication: COLORECTAL CANCER
     Route: 041
     Dates: start: 20100803, end: 20100815
  7. FAMOTIDINE [Concomitant]
     Dosage: UNK
     Route: 048
  8. LAC B [Concomitant]
     Dosage: UNK
     Route: 048
  9. FLUOROURACIL [Concomitant]
     Route: 041
     Dates: start: 20100803, end: 20100815
  10. LOXOPROFEN SODIUM [Concomitant]
     Dosage: UNK
     Route: 048
  11. FAMOTIDINE [Concomitant]
     Dosage: UNK
     Route: 048
  12. LASIX [Concomitant]
     Dosage: UNK
     Route: 048
  13. LANSOPRAZOLE [Concomitant]
     Dosage: UNK
     Route: 048
  14. MAGNESIUM OXIDE [Concomitant]
     Dosage: UNK
     Route: 048
  15. MUCODYNE [Concomitant]
     Dosage: UNK
     Route: 048
  16. CORTICOSTEROIDS [Concomitant]
     Indication: PROPHYLAXIS
     Dosage: UNK
     Route: 065
  17. IRINOTECAN HCL [Suspect]
     Dosage: 190 MG, Q2WK
     Route: 041
     Dates: start: 20101018
  18. DASEN [Concomitant]
     Dosage: 5 MG, UNK
     Route: 048
  19. REBAMIPIDE [Concomitant]
     Dosage: UNK
     Route: 048
  20. ETODOLAC [Concomitant]
     Dosage: UNK
     Route: 048
  21. SELBEX [Concomitant]
     Dosage: UNK
     Route: 048
  22. MEIACT [Concomitant]
     Dosage: UNK
     Route: 048
  23. PANITUMUMAB [Suspect]
     Indication: COLORECTAL CANCER
     Dosage: 6 MG/KG, Q2WK
     Route: 041
     Dates: start: 20100803, end: 20100803
  24. PANITUMUMAB [Suspect]
     Dosage: 5 MG/KG, Q2WK
     Route: 041
     Dates: start: 20100906, end: 20101213
  25. DEXAMETHASONE SODIUM PHOSPHATE [Concomitant]
     Dosage: 6.6 MG, UNK
     Route: 042
     Dates: start: 20100803
  26. CEFDINIR [Concomitant]
     Dosage: UNK
     Route: 048

REACTIONS (11)
  - NAIL AVULSION [None]
  - PYREXIA [None]
  - DECREASED APPETITE [None]
  - NEUROPATHY PERIPHERAL [None]
  - FATIGUE [None]
  - STOMATITIS [None]
  - BLOOD MAGNESIUM DECREASED [None]
  - COLORECTAL CANCER [None]
  - RASH [None]
  - DYSGEUSIA [None]
  - DRY SKIN [None]
